FAERS Safety Report 7699791 (Version 5)
Quarter: 2018Q4

REPORT INFORMATION
  Report Type: Spontaneous
  Country: FR (occurrence: FR)
  Receive Date: 20101208
  Receipt Date: 20181017
  Transmission Date: 20190205
  Serious: Yes (Death, Hospitalization, Other)
  Sender: FDA-Public Use
  Company Number: FR-AMGEN-FRASP2010006888

PATIENT
  Age: 65 Year
  Sex: Male

DRUGS (7)
  1. TRIATEC (RAMIPRIL) [Concomitant]
     Active Substance: RAMIPRIL
     Dosage: 5 MG, SCORED TABLET
  2. CORTISONE [Concomitant]
     Active Substance: CORTISONE\HYDROCORTISONE
     Dosage: 12.5 MG, UNK
  3. INEXIUM [Concomitant]
     Active Substance: ESOMEPRAZOLE
     Dosage: UNK
  4. PLAVIX [Concomitant]
     Active Substance: CLOPIDOGREL BISULFATE
     Dosage: UNK
  5. CORTANCYL [Concomitant]
     Active Substance: PREDNISONE
     Dosage: UNK
  6. ENBREL [Suspect]
     Active Substance: ETANERCEPT
     Indication: RHEUMATOID ARTHRITIS
     Dosage: 25 MG, WEEKLY
     Route: 058
     Dates: start: 20101026, end: 20101116
  7. EFFERALGAN [Concomitant]
     Active Substance: ACETAMINOPHEN

REACTIONS (13)
  - Cardio-respiratory arrest [Fatal]
  - Arthralgia [Unknown]
  - Hepatic failure [Fatal]
  - Acute kidney injury [Fatal]
  - Diarrhoea [Unknown]
  - Fatigue [Unknown]
  - Generalised tonic-clonic seizure [Unknown]
  - Pleural effusion [Unknown]
  - Hypoglycaemia [Unknown]
  - Nausea [Unknown]
  - Seizure [Fatal]
  - Oedema [Unknown]
  - Multiple organ dysfunction syndrome [Fatal]

NARRATIVE: CASE EVENT DATE: 201011
